FAERS Safety Report 7162077-2 (Version None)
Quarter: 2010Q4

REPORT INFORMATION
  Report Type: 
  Country: None (occurrence: None)
  Receive Date: 20101215
  Receipt Date: 20101202
  Transmission Date: 20110411
  Serious: No
  Sender: FDA-Public Use
  Company Number: US-B.I. PHARMACEUTICALS,INC./RIDGEFIELD-2010-BP-13734BP

PATIENT
  Age: 88 Year
  Sex: Female

DRUGS (2)
  1. ZANTAC 150 [Suspect]
     Indication: DYSPEPSIA
     Dosage: 150 MG
     Route: 048
     Dates: start: 20091201
  2. WELLBUTRIN [Concomitant]
     Indication: DEPRESSION
     Dosage: 15 MG
     Route: 048

REACTIONS (4)
  - ALOPECIA [None]
  - CONSTIPATION [None]
  - HOT FLUSH [None]
  - NAUSEA [None]
